FAERS Safety Report 14293469 (Version 4)
Quarter: 2018Q2

REPORT INFORMATION
  Report Type: Report from Study
  Country: None (occurrence: FR)
  Receive Date: 20171215
  Receipt Date: 20180510
  Transmission Date: 20180711
  Serious: Yes (Life-Threatening, Hospitalization, Other)
  Sender: FDA-Public Use
  Company Number: FR-ABBVIE-17K-056-2195491-00

PATIENT
  Sex: Male

DRUGS (1)
  1. DUODOPA [Suspect]
     Active Substance: CARBIDOPA\LEVODOPA
     Indication: PARKINSON^S DISEASE
     Route: 050
     Dates: start: 201602

REACTIONS (7)
  - Loss of consciousness [Unknown]
  - Cardiac arrest [Unknown]
  - Pain [Unknown]
  - Freezing phenomenon [Unknown]
  - Device dislocation [Unknown]
  - Off label use [Unknown]
  - Speech disorder [Unknown]

NARRATIVE: CASE EVENT DATE: 2017
